FAERS Safety Report 8372853-6 (Version None)
Quarter: 2012Q2

REPORT INFORMATION
  Report Type: 
  Country: None (occurrence: None)
  Receive Date: 20120521
  Receipt Date: 20120518
  Transmission Date: 20120825
  Serious: Yes (Other)
  Sender: FDA-Public Use
  Company Number: US-PFIZER INC-2012121519

PATIENT
  Sex: Male
  Weight: 81.633 kg

DRUGS (3)
  1. CHANTIX [Suspect]
     Indication: SMOKING CESSATION THERAPY
     Dosage: 0.5 MG, 1X/DAY
     Dates: start: 20100101, end: 20100101
  2. TEMAZEPAM [Concomitant]
     Indication: INSOMNIA
     Dosage: UNK, AS NEEDED
  3. CHANTIX [Suspect]
     Dosage: UNK
     Dates: start: 20100101

REACTIONS (2)
  - ABNORMAL DREAMS [None]
  - PNEUMONIA [None]
